FAERS Safety Report 24224205 (Version 1)
Quarter: 2024Q3

REPORT INFORMATION
  Report Type: Spontaneous
  Country: CN (occurrence: CN)
  Receive Date: 20240819
  Receipt Date: 20240819
  Transmission Date: 20241017
  Serious: Yes (Death)
  Sender: KARYOPHARM THERAPEUTICS
  Company Number: CN-KARYOPHARM-2024KPT001427

PATIENT

DRUGS (6)
  1. XPOVIO [Suspect]
     Active Substance: SELINEXOR
     Indication: Chronic leukaemia
     Dosage: 60 MG, WEEKLY
     Dates: start: 20230214
  2. XPOVIO [Suspect]
     Active Substance: SELINEXOR
     Indication: Precursor T-lymphoblastic lymphoma/leukaemia recurrent
  3. VENETOCLAX [Concomitant]
     Active Substance: VENETOCLAX
     Dosage: 200 MG DAY 1-28
     Dates: start: 20230214
  4. CYTARABINE [Concomitant]
     Active Substance: CYTARABINE
     Dosage: UNK
     Dates: start: 20230214
  5. ACLARUBICIN [Concomitant]
     Active Substance: ACLARUBICIN
     Dosage: UNK
     Dates: start: 20230214
  6. GRANULOCYTE COLONY-STIMULATING FACTOR NOS [Concomitant]
     Active Substance: GRANULOCYTE COLONY-STIMULATING FACTOR NOS
     Dosage: UNK
     Dates: start: 20230214

REACTIONS (1)
  - Therapy non-responder [Fatal]

NARRATIVE: CASE EVENT DATE: 20230101
